FAERS Safety Report 25400447 (Version 1)
Quarter: 2025Q2

REPORT INFORMATION
  Report Type: Spontaneous
  Country: JP (occurrence: JP)
  Receive Date: 20250605
  Receipt Date: 20250605
  Transmission Date: 20250717
  Serious: Yes (Death)
  Sender: ROCHE
  Company Number: JP-CHUGAI-2025017664

PATIENT
  Age: 64 Year
  Sex: Male
  Weight: 64.1 kg

DRUGS (2)
  1. PHESGO [Suspect]
     Active Substance: HYALURONIDASE-ZZXF\PERTUZUMAB\TRASTUZUMAB
     Indication: HER2 positive colorectal cancer
     Route: 058
     Dates: start: 20240507, end: 20240507
  2. PHESGO [Suspect]
     Active Substance: HYALURONIDASE-ZZXF\PERTUZUMAB\TRASTUZUMAB
     Route: 058
     Dates: start: 20240528, end: 20241022

REACTIONS (1)
  - Completed suicide [Fatal]

NARRATIVE: CASE EVENT DATE: 20241108
